FAERS Safety Report 15243498 (Version 2)
Quarter: 2018Q3

REPORT INFORMATION
  Report Type: Other
  Country: US (occurrence: US)
  Receive Date: 20180806
  Receipt Date: 20180810
  Transmission Date: 20181010
  Serious: Yes (Other)
  Sender: FDA-Public Use
  Company Number: US-MERZ NORTH AMERICA, INC.-18MRZ-00376

PATIENT
  Sex: Female

DRUGS (8)
  1. PROAIR HFA [Concomitant]
     Active Substance: ALBUTEROL SULFATE
  2. TRAMADOL. [Concomitant]
     Active Substance: TRAMADOL
  3. ASCLERA [Suspect]
     Active Substance: POLIDOCANOL
     Dosage: 2CC FOAMED WITH 6CC OF ROOM AIR
     Route: 042
     Dates: start: 20171222, end: 20171222
  4. METFORMIN [Concomitant]
     Active Substance: METFORMIN HYDROCHLORIDE
  5. ASCLERA [Suspect]
     Active Substance: POLIDOCANOL
     Indication: VARICOSE VEIN
     Dosage: 2CC FOAMED WITH 6CC OF ROOM AIR
     Route: 042
     Dates: start: 20171211, end: 20171211
  6. CITALOPRAM [Concomitant]
     Active Substance: CITALOPRAM HYDROBROMIDE
  7. CYCLOBENZAPRINE. [Concomitant]
     Active Substance: CYCLOBENZAPRINE
  8. HYDROXINE [Concomitant]
     Active Substance: HYDROXYZINE HYDROCHLORIDE

REACTIONS (1)
  - Deep vein thrombosis [Unknown]
